FAERS Safety Report 8159031-0 (Version None)
Quarter: 2012Q1

REPORT INFORMATION
  Report Type: 
  Country: None (occurrence: None)
  Receive Date: 20120103
  Receipt Date: 20110912
  Transmission Date: 20120608
  Serious: No
  Sender: FDA-Public Use
  Company Number: AE-2011-001470

PATIENT
  Age: 56 Year
  Sex: Female
  Weight: 73.4827 kg

DRUGS (3)
  1. RIBAPAK (RIBAVIRIN) [Concomitant]
  2. INCIVEK [Suspect]
     Dosage: 2250 (750 MG, 3 IN 1 D), ORAL
     Route: 048
     Dates: start: 20110902
  3. PEG-INTRON [Concomitant]

REACTIONS (4)
  - CHILLS [None]
  - NAUSEA [None]
  - ANAL PRURITUS [None]
  - PYREXIA [None]
